FAERS Safety Report 9322805 (Version 1)
Quarter: 2013Q2

REPORT INFORMATION
  Report Type: Report from Study
  Country: AT (occurrence: AT)
  Receive Date: 20130601
  Receipt Date: 20130601
  Transmission Date: 20140414
  Serious: Yes (Hospitalization)
  Sender: FDA-Public Use
  Company Number: AT-ROCHE-1220778

PATIENT
  Age: 85 Year
  Sex: Female
  Weight: 50 kg

DRUGS (8)
  1. RITUXIMAB [Suspect]
     Indication: LYMPHOMA
     Dosage: LAST DOSE PRIOR TO SAE: 05/APR/2013
     Route: 042
     Dates: start: 20130204
  2. LENALIDOMIDE [Suspect]
     Indication: LYMPHOMA
     Dosage: 25/APR/2013
     Route: 048
     Dates: start: 20130204
  3. THYROXIN [Concomitant]
     Indication: THYROIDECTOMY
     Route: 065
  4. TEGRETOL [Concomitant]
     Indication: POLYNEUROPATHY
     Route: 065
  5. COMBIGAN [Concomitant]
     Indication: INTRAOCULAR PRESSURE INCREASED
     Route: 065
  6. XALATAN [Concomitant]
     Indication: INTRAOCULAR PRESSURE INCREASED
     Route: 065
  7. SOTALOL [Concomitant]
     Indication: ARRHYTHMIA
     Route: 065
  8. TRITACE [Concomitant]
     Indication: HYPERTENSION
     Route: 065

REACTIONS (1)
  - Cholecystitis [Recovered/Resolved]
